FAERS Safety Report 7730303-4 (Version None)
Quarter: 2011Q3

REPORT INFORMATION
  Report Type: 
  Country: None (occurrence: None)
  Receive Date: 20110906
  Receipt Date: 20110823
  Transmission Date: 20111222
  Serious: Yes (Death, Other)
  Sender: FDA-Public Use
  Company Number: US-ELI_LILLY_AND_COMPANY-US201106004737

PATIENT
  Sex: Female
  Weight: 78.458 kg

DRUGS (25)
  1. FORTEO [Suspect]
     Indication: OSTEOPOROSIS
     Dosage: 20 UG, QD
     Route: 058
     Dates: start: 20100222, end: 20110207
  2. NITROGLYCERIN [Concomitant]
  3. NORCO [Concomitant]
  4. VITAMIN D [Concomitant]
     Dosage: 2000 U, BID
  5. NAMENDA [Concomitant]
  6. MICARDIS HCT [Concomitant]
  7. KEFLEX [Concomitant]
  8. USANA MULTIMINERAL [Concomitant]
  9. AMLODIPINE [Concomitant]
     Dosage: 5 MG, BID
  10. DARVOCET-N 50 [Concomitant]
  11. METOPROLOL [Concomitant]
     Dosage: 25 MG, BID
  12. CRESTOR [Concomitant]
  13. CLARITIN [Concomitant]
  14. LOVAZA [Concomitant]
     Dosage: 1 G, BID
  15. ACIPHEX [Concomitant]
     Dosage: 20 MG, QD
  16. ASPIRIN [Concomitant]
  17. SYMBICORT [Concomitant]
  18. KAPIDEX [Concomitant]
  19. MEGACE [Concomitant]
     Dosage: 10 ML, QD
  20. HYDRALAZINE HCL [Concomitant]
  21. CALCIUM CARBONATE [Concomitant]
  22. COQ [Concomitant]
  23. SPIRIVA [Concomitant]
  24. VITAMIN B-12 [Concomitant]
  25. ALLOPURINOL [Concomitant]
     Dosage: 300 MG, QD

REACTIONS (3)
  - CARDIAC ARREST [None]
  - RENAL FAILURE [None]
  - RENAL CANCER METASTATIC [None]
